FAERS Safety Report 6533182-6 (Version None)
Quarter: 2010Q1

REPORT INFORMATION
  Report Type: 
  Country: None (occurrence: None)
  Receive Date: 20100111
  Receipt Date: 20091231
  Transmission Date: 20100710
  Serious: Yes (Other)
  Sender: FDA-Public Use
  Company Number: US-SANOFI-AVENTIS-2010SA000070

PATIENT
  Age: 60 Year
  Sex: Female

DRUGS (5)
  1. MULTAQ [Suspect]
     Indication: ATRIAL FIBRILLATION
     Route: 048
     Dates: start: 20091123
  2. WARFARIN SODIUM [Concomitant]
     Indication: ATRIAL FIBRILLATION
     Dates: start: 19950101
  3. MULTI-VITAMINS [Concomitant]
  4. MAGNESIUM [Concomitant]
  5. LIPITOR [Concomitant]

REACTIONS (1)
  - ATRIAL FIBRILLATION [None]
